FAERS Safety Report 12459743 (Version 1)
Quarter: 2016Q2

REPORT INFORMATION
  Report Type: Spontaneous
  Country: BR (occurrence: BR)
  Receive Date: 20160613
  Receipt Date: 20160613
  Transmission Date: 20160815
  Serious: Yes (Hospitalization, Other)
  Sender: FDA-Public Use
  Company Number: BR-GLAXOSMITHKLINE-BR2016GSK083118

PATIENT
  Sex: Male
  Weight: 16.5 kg

DRUGS (4)
  1. CLAVULIN ES [Suspect]
     Active Substance: AMOXICILLIN\CLAVULANATE POTASSIUM
     Indication: SINUSITIS
     Dosage: 5 ML, UNK
     Dates: end: 20160530
  2. CLAVULIN [Suspect]
     Active Substance: AMOXICILLIN\CLAVULANIC ACID
     Indication: SINUSITIS
     Dosage: UNK
     Route: 048
  3. ZINNAT [Suspect]
     Active Substance: CEFUROXIME AXETIL
     Indication: PNEUMONIA
     Dosage: 5 ML, BID
     Route: 048
     Dates: start: 20160403, end: 20160403
  4. ZINNAT [Suspect]
     Active Substance: CEFUROXIME AXETIL
     Indication: SINUSITIS

REACTIONS (7)
  - Drug ineffective [Unknown]
  - Condition aggravated [Unknown]
  - Vomiting [Unknown]
  - Gastric disorder [Unknown]
  - Pneumonia [Unknown]
  - Pyrexia [Unknown]
  - Product taste abnormal [Unknown]
